FAERS Safety Report 13445539 (Version 1)
Quarter: 2017Q2

REPORT INFORMATION
  Report Type: Spontaneous
  Country: US (occurrence: US)
  Receive Date: 20170415
  Receipt Date: 20170415
  Transmission Date: 20170830
  Serious: No
  Sender: FDA-Public Use
  Company Number: US-BION-005847

PATIENT
  Age: 46 Year
  Sex: Male
  Weight: 80.27 kg

DRUGS (1)
  1. ALEVE [Suspect]
     Active Substance: NAPROXEN SODIUM
     Indication: PAIN
     Dosage: ON 16-DEC-2016, THE DOSE WAS CHANGED TO 2 DOSAGE FORM (NAA49XN ) ONCE, WITH A FULL BOTTLE OF WATER
     Route: 048
     Dates: start: 2013

REACTIONS (6)
  - Fatigue [Recovered/Resolved]
  - Vomiting [Recovered/Resolved]
  - Dizziness [Unknown]
  - Nausea [Recovered/Resolved]
  - Hyperhidrosis [Recovered/Resolved]
  - Incorrect product storage [Not Recovered/Not Resolved]

NARRATIVE: CASE EVENT DATE: 2015
